FAERS Safety Report 18452219 (Version 1)
Quarter: 2020Q4

REPORT INFORMATION
  Report Type: Spontaneous
  Country: US (occurrence: US)
  Receive Date: 20201101
  Receipt Date: 20201101
  Transmission Date: 20210114
  Serious: Yes (Disabling, Other)
  Sender: FDA-Public Use
  Company Number: None

PATIENT
  Age: 59 Year
  Sex: Female

DRUGS (2)
  1. ALPRAZOLAM. [Suspect]
     Active Substance: ALPRAZOLAM
     Indication: INSOMNIA
     Dosage: ?          QUANTITY:1 TABLET(S);?
     Route: 048
     Dates: start: 20091001, end: 20121123
  2. BABY ASPIRIN [Concomitant]
     Active Substance: ASPIRIN

REACTIONS (10)
  - Anxiety [None]
  - Hyperacusis [None]
  - Cognitive disorder [None]
  - Incontinence [None]
  - Photophobia [None]
  - Amnesia [None]
  - Dysphemia [None]
  - Thirst [None]
  - Decreased appetite [None]
  - Asthenia [None]

NARRATIVE: CASE EVENT DATE: 20121013
